FAERS Safety Report 9657883 (Version 1)
Quarter: 2013Q4

REPORT INFORMATION
  Report Type: Spontaneous
  Country: DE (occurrence: None)
  Receive Date: 20131029
  Receipt Date: 20131029
  Transmission Date: 20140711
  Serious: Yes (Other)
  Sender: FDA-Public Use
  Company Number: DE-20130209

PATIENT
  Age: 35 Year
  Sex: Female

DRUGS (1)
  1. DOTAREM [Suspect]
     Indication: NUCLEAR MAGNETIC RESONANCE IMAGING
     Dosage: 15 ML (15 ML, 1 IN 1 D) INTRAVENOUS (NOT OTHERIWISE SPECIFIED)?
     Route: 042
     Dates: start: 20131014, end: 20131014

REACTIONS (5)
  - Retching [None]
  - Nausea [None]
  - Paraesthesia [None]
  - Feeling hot [None]
  - Cough [None]
